FAERS Safety Report 12127361 (Version 2)
Quarter: 2016Q1

REPORT INFORMATION
  Report Type: Report from Study
  Country: US (occurrence: US)
  Receive Date: 20160229
  Receipt Date: 20160307
  Transmission Date: 20160526
  Serious: Yes (Death, Hospitalization)
  Sender: FDA-Public Use
  Company Number: US-PFIZER INC-2015204934

PATIENT
  Age: 60 Year
  Sex: Female
  Weight: 69 kg

DRUGS (5)
  1. VITAMIN D [Concomitant]
     Active Substance: CHOLECALCIFEROL
     Indication: SUPPLEMENTATION THERAPY
     Dosage: 1 TABLET, DAILY
     Route: 048
     Dates: start: 20141003
  2. TOFACITINIB CITRATE [Suspect]
     Active Substance: TOFACITINIB CITRATE
     Indication: PSORIASIS
     Dosage: 10MG TWICE DAILY
     Route: 048
     Dates: start: 20130311, end: 20150608
  3. VITAMIN C [Concomitant]
     Active Substance: ASCORBIC ACID
     Indication: SUPPLEMENTATION THERAPY
     Dosage: 1 TABLET, DAILY
     Route: 048
     Dates: start: 20141003
  4. VITAMIN B12 [Concomitant]
     Active Substance: CYANOCOBALAMIN
     Indication: SUPPLEMENTATION THERAPY
     Dosage: 2500 MCG, DAILY
     Route: 048
     Dates: start: 20141003
  5. TRICOR [Concomitant]
     Active Substance: FENOFIBRATE
     Indication: HYPERLIPIDAEMIA
     Dosage: 145 MG, DAILY
     Route: 048
     Dates: start: 20141008

REACTIONS (6)
  - Metastases to bone [Fatal]
  - Lung adenocarcinoma metastatic [Fatal]
  - Lung neoplasm malignant [Fatal]
  - Hepatic cancer metastatic [Fatal]
  - Back pain [Recovered/Resolved with Sequelae]
  - Disease progression [Fatal]

NARRATIVE: CASE EVENT DATE: 20150520
